FAERS Safety Report 5234696-1 (Version None)
Quarter: 2007Q1

REPORT INFORMATION
  Report Type: 
  Country: None (occurrence: None)
  Receive Date: 20070209
  Receipt Date: 20070201
  Transmission Date: 20070707
  Serious: Yes (Other)
  Sender: FDA-Public Use
  Company Number: GB-ABBOTT-07P-167-0357953-00

PATIENT
  Age: 63 Year
  Sex: Female
  Weight: 60 kg

DRUGS (3)
  1. ERYTHROMYCIN BASE [Suspect]
     Indication: SKIN LACERATION
     Dates: start: 20070108, end: 20070114
  2. ACETAMINOPHEN W/ CODEINE [Concomitant]
     Indication: PAIN
     Dates: start: 20070107, end: 20070110
  3. OSTEO FORCE [Concomitant]
     Indication: OSTEOPOROSIS PROPHYLAXIS
     Route: 048

REACTIONS (3)
  - DEPRESSION SUICIDAL [None]
  - GASTROINTESTINAL DISORDER [None]
  - NAUSEA [None]
